FAERS Safety Report 4335621-8 (Version None)
Quarter: 2004Q2

REPORT INFORMATION
  Report Type: 
  Country: None (occurrence: None)
  Receive Date: 20040406
  Receipt Date: 20040330
  Transmission Date: 20050107
  Serious: Yes (Life-Threatening, Hospitalization, Other)
  Sender: FDA-Public Use
  Company Number: 2002118615US

PATIENT
  Age: 54 Year
  Sex: Female
  Weight: 68 kg

DRUGS (2)
  1. CELEBREX [Suspect]
     Indication: ARTHRITIS
     Dosage: 1 CAPSULE, ORAL
     Route: 048
     Dates: start: 20000101, end: 20020801
  2. UNSPECIFIED BLOOD PRESSURE MEDICATION [Concomitant]

REACTIONS (12)
  - CARDIOMEGALY [None]
  - DIABETES MELLITUS [None]
  - DIALYSIS [None]
  - DIFFICULTY IN WALKING [None]
  - DYSPNOEA [None]
  - EYE HAEMORRHAGE [None]
  - LIVER DISORDER [None]
  - OEDEMA PERIPHERAL [None]
  - PULMONARY HAEMORRHAGE [None]
  - RENAL FAILURE [None]
  - ULCER [None]
  - VASCULAR INJURY [None]
